FAERS Safety Report 5419781-3 (Version None)
Quarter: 2007Q3

REPORT INFORMATION
  Report Type: 
  Country: None (occurrence: None)
  Receive Date: 20070820
  Receipt Date: 20070810
  Transmission Date: 20080115
  Serious: Yes (Disabling)
  Sender: FDA-Public Use
  Company Number: JP-ASTRAZENECA-2007AP04204

PATIENT
  Age: 21457 Day
  Sex: Female
  Weight: 84.2 kg

DRUGS (18)
  1. OMEPRAZOLE [Suspect]
     Indication: GASTRITIS
     Route: 048
     Dates: start: 20070410, end: 20070702
  2. AMLODIN OD [Concomitant]
     Indication: HYPERTENSION
     Route: 048
     Dates: start: 20061203
  3. TRICHLORMETHIAZIDE [Concomitant]
     Indication: OEDEMA
     Route: 048
     Dates: start: 20061203
  4. TRICHLORMETHIAZIDE [Concomitant]
     Indication: RENAL FAILURE CHRONIC
     Route: 048
     Dates: start: 20061203
  5. LASIX [Concomitant]
     Indication: OEDEMA
     Route: 048
     Dates: start: 20061203
  6. LASIX [Concomitant]
     Indication: RENAL FAILURE CHRONIC
     Route: 048
     Dates: start: 20061203
  7. CALTAN [Concomitant]
     Indication: RENAL FAILURE CHRONIC
     Route: 048
     Dates: start: 20061203
  8. CALTAN [Concomitant]
     Indication: HYPERPHOSPHATAEMIA
     Route: 048
     Dates: start: 20061203
  9. KREMEZIN [Concomitant]
     Indication: RENAL FAILURE CHRONIC
     Route: 048
     Dates: start: 20061203
  10. AMOBAN [Concomitant]
     Indication: ANXIOLYTIC THERAPY
     Route: 048
     Dates: start: 20061203
  11. JUSO [Concomitant]
     Indication: RENAL FAILURE CHRONIC
     Route: 048
     Dates: start: 20061203
  12. JUSO [Concomitant]
     Indication: BLOOD BICARBONATE DECREASED
     Route: 048
     Dates: start: 20061203
  13. ASPIRIN [Concomitant]
     Indication: MYOCARDIAL INFARCTION
     Route: 048
     Dates: start: 20061203
  14. OLMETEC [Concomitant]
     Indication: HYPERTENSION
     Route: 048
     Dates: start: 20061203
  15. DEPAS [Concomitant]
     Indication: ANXIOLYTIC THERAPY
     Route: 048
     Dates: start: 20061203
  16. HOKUNALIN:TAPE [Concomitant]
     Indication: ASTHMA
     Dates: start: 20061212
  17. SODIUM CHLORIDE [Concomitant]
     Indication: HYPONATRAEMIA
     Route: 048
     Dates: start: 20070702
  18. AUGMENTIN '125' [Concomitant]

REACTIONS (1)
  - MUSCLE DISORDER [None]
